FAERS Safety Report 6521714-3 (Version None)
Quarter: 2009Q4

REPORT INFORMATION
  Report Type: 
  Country: None (occurrence: None)
  Receive Date: 20091230
  Receipt Date: 20091221
  Transmission Date: 20100525
  Serious: No
  Sender: FDA-Public Use
  Company Number: US-SOLVAY-00209007930

PATIENT
  Age: 47 Year
  Sex: Female

DRUGS (3)
  1. UNKNOWN THYROID MEDICATION [Concomitant]
     Indication: THYROID DISORDER
     Dosage: DAILY DOSE:  UNKNOWN
     Route: 048
  2. ANDROGEL [Suspect]
     Indication: ACCIDENTAL EXPOSURE
     Dosage: DAILY DOSE: 7.5 GRAM(S)
     Route: 062
     Dates: start: 20050101
  3. CAFERGOT [Concomitant]
     Indication: MIGRAINE
     Dosage: DAILY DOSE:  UNKNOWN
     Route: 065

REACTIONS (1)
  - MENSTRUATION IRREGULAR [None]
